FAERS Safety Report 23080338 (Version 1)
Quarter: 2023Q4

REPORT INFORMATION
  Report Type: Spontaneous
  Country: CN (occurrence: CN)
  Receive Date: 20231018
  Receipt Date: 20231018
  Transmission Date: 20240110
  Serious: Yes (Hospitalization)
  Sender: FDA-Public Use
  Company Number: CN-OTSUKA-2023_026802

PATIENT
  Age: 15 Year
  Sex: Female

DRUGS (1)
  1. ARIPIPRAZOLE [Suspect]
     Active Substance: ARIPIPRAZOLE
     Indication: Mixed anxiety and depressive disorder
     Dosage: 12.5 MG, QD
     Route: 048
     Dates: start: 20230828, end: 20230919

REACTIONS (2)
  - Adverse event [Recovering/Resolving]
  - Product use in unapproved indication [Unknown]

NARRATIVE: CASE EVENT DATE: 20230828
